FAERS Safety Report 20489109 (Version 1)
Quarter: 2022Q1

REPORT INFORMATION
  Report Type: Spontaneous
  Country: US (occurrence: None)
  Receive Date: 20220217
  Receipt Date: 20220217
  Transmission Date: 20220423
  Serious: No
  Sender: FDA-Public Use
  Company Number: None

PATIENT
  Age: 52 Year
  Sex: Female

DRUGS (1)
  1. CAPECITABINE [Suspect]
     Active Substance: CAPECITABINE
     Indication: Colon cancer
     Dosage: 1800 MG BID ORAL
     Route: 048
     Dates: start: 202202

REACTIONS (6)
  - Vision blurred [None]
  - Dizziness [None]
  - Pain in extremity [None]
  - Muscle spasms [None]
  - Therapy interrupted [None]
  - Temperature intolerance [None]

NARRATIVE: CASE EVENT DATE: 20220217
